FAERS Safety Report 8565314-2 (Version None)
Quarter: 2012Q3

REPORT INFORMATION
  Report Type: 
  Country: None (occurrence: None)
  Receive Date: 20120803
  Receipt Date: 20120727
  Transmission Date: 20120928
  Serious: Yes (Life-Threatening, Hospitalization)
  Sender: FDA-Public Use
  Company Number: JP-EISAI INC-E7389-02259-CLI-JP

PATIENT
  Sex: Female
  Weight: 43 kg

DRUGS (9)
  1. PREDNISOLONE [Concomitant]
     Route: 065
     Dates: start: 20111101, end: 20111108
  2. VITAMIN B12 [Concomitant]
     Route: 065
     Dates: start: 20111101, end: 20111108
  3. HALAVEN [Suspect]
     Indication: BREAST CANCER RECURRENT
     Route: 041
     Dates: start: 20110912
  4. HALAVEN [Suspect]
     Indication: METASTASES TO LIVER
  5. RABEPRAZOLE SODIUM [Concomitant]
     Route: 065
     Dates: start: 20111101, end: 20111108
  6. ADENOSINE [Concomitant]
     Route: 065
     Dates: start: 20111101, end: 20111108
  7. ZOMETA [Concomitant]
     Route: 065
     Dates: start: 20080101, end: 20111114
  8. CYCLOPHOSPHAMIDE [Suspect]
     Route: 065
     Dates: end: 20110912
  9. HALAVEN [Suspect]
     Indication: METASTASES TO BONE

REACTIONS (1)
  - CYSTITIS HAEMORRHAGIC [None]
